FAERS Safety Report 20831546 (Version 11)
Quarter: 2022Q3

REPORT INFORMATION
  Report Type: Report from Study
  Country: None (occurrence: CA)
  Receive Date: 20220516
  Receipt Date: 20220804
  Transmission Date: 20221027
  Serious: Yes (Hospitalization, Other)
  Sender: FDA-Public Use
  Company Number: CA-AKCEA THERAPEUTICS, INC.-2022IS003434

PATIENT
  Age: 53 Year
  Sex: Male

DRUGS (16)
  1. TEGSEDI [Suspect]
     Active Substance: INOTERSEN SODIUM
     Indication: Hereditary neuropathic amyloidosis
     Route: 058
     Dates: start: 20190318, end: 20220407
  2. DEVICE [Suspect]
     Active Substance: DEVICE
  3. ZOPICLONE [Concomitant]
     Active Substance: ZOPICLONE
     Route: 065
  4. DOXYCYCLINE [Concomitant]
     Active Substance: DOXYCYCLINE
     Route: 065
  5. DIFLUNISAL ARGININE [Concomitant]
     Route: 065
  6. ERGOCALCIFEROL [Concomitant]
     Active Substance: ERGOCALCIFEROL
     Route: 065
  7. CALCIUM CARBONATE PCH [Concomitant]
     Route: 065
  8. MAGNESIUM OXIDE [Concomitant]
     Active Substance: MAGNESIUM OXIDE
     Route: 065
  9. RAMIPRIL - CT [Concomitant]
     Route: 065
  10. ASPIRIN [Concomitant]
     Active Substance: ASPIRIN
     Route: 065
  11. PANTOPRAZOLE SODIUM [Concomitant]
     Active Substance: PANTOPRAZOLE SODIUM
     Route: 065
  12. ATORVASTATIN CALCIUM [Concomitant]
     Active Substance: ATORVASTATIN CALCIUM
     Route: 065
  13. PROGRAF [Concomitant]
     Active Substance: TACROLIMUS
     Route: 065
  14. SIROLIMUS [Concomitant]
     Active Substance: SIROLIMUS
     Route: 065
  15. MYFORTIC [Concomitant]
     Active Substance: MYCOPHENOLATE SODIUM
     Route: 065
  16. TEGSEDI [Suspect]
     Active Substance: INOTERSEN SODIUM
     Route: 058
     Dates: start: 20220512

REACTIONS (41)
  - Platelet count decreased [Recovered/Resolved]
  - White blood cell count decreased [Not Recovered/Not Resolved]
  - Red blood cell count decreased [Recovered/Resolved]
  - Haemoglobin decreased [Recovered/Resolved]
  - Haematocrit decreased [Recovered/Resolved]
  - Mean cell haemoglobin decreased [Recovered/Resolved]
  - Mean cell haemoglobin concentration decreased [Recovered/Resolved]
  - Neutrophil count decreased [Not Recovered/Not Resolved]
  - Glycosylated haemoglobin increased [Recovered/Resolved]
  - Blood creatinine increased [Recovered/Resolved]
  - Blood calcium decreased [Recovered/Resolved]
  - Blood albumin decreased [Not Recovered/Not Resolved]
  - Blood lactate dehydrogenase increased [Not Recovered/Not Resolved]
  - Anion gap decreased [Recovered/Resolved]
  - Blood magnesium decreased [Recovered/Resolved]
  - Red cell distribution width increased [Recovered/Resolved]
  - Blood cholesterol decreased [Recovered/Resolved]
  - Creatinine urine increased [Recovered/Resolved]
  - Protein urine present [Recovered/Resolved]
  - Urine protein/creatinine ratio abnormal [Recovered/Resolved]
  - Diarrhoea [Recovered/Resolved]
  - Vomiting [Recovered/Resolved]
  - Malaise [Recovered/Resolved]
  - Rhinorrhoea [Unknown]
  - Blood magnesium increased [Recovered/Resolved]
  - Reticulocyte count decreased [Recovered/Resolved]
  - Platelet disorder [Recovered/Resolved]
  - Red blood cell elliptocytes present [Recovered/Resolved]
  - Red blood cell burr cells present [Unknown]
  - Urine albumin/creatinine ratio increased [Recovered/Resolved]
  - Blood potassium increased [Recovered/Resolved]
  - Blood chloride increased [Recovered/Resolved]
  - High density lipoprotein decreased [Recovered/Resolved]
  - Blood urea increased [Recovered/Resolved]
  - Cough [Recovered/Resolved]
  - Glomerular filtration rate decreased [Recovered/Resolved]
  - Fatigue [Recovered/Resolved]
  - Urine protein/creatinine ratio decreased [Recovered/Resolved]
  - Oxygen saturation abnormal [Unknown]
  - Urine protein/creatinine ratio increased [Recovered/Resolved]
  - Lymphocyte count decreased [Recovered/Resolved]

NARRATIVE: CASE EVENT DATE: 20220405
